FAERS Safety Report 7482761-0 (Version None)
Quarter: 2011Q2

REPORT INFORMATION
  Report Type: 
  Country: None (occurrence: None)
  Receive Date: 20110516
  Receipt Date: 20110110
  Transmission Date: 20111010
  Serious: No
  Sender: FDA-Public Use
  Company Number: US-BAYER-2011-031097

PATIENT
  Age: 83 Year
  Sex: Female
  Weight: 75 kg

DRUGS (4)
  1. ALEVE (CAPLET) [Suspect]
     Dosage: UNK
     Dates: start: 20110110
  2. ZOCOR [Concomitant]
  3. LISINOPRIL [Concomitant]
  4. TRIAMTERENE AND HYDROCHLOROTHIAZID [Concomitant]

REACTIONS (1)
  - NO ADVERSE EVENT [None]
